FAERS Safety Report 21939811 (Version 1)
Quarter: 2023Q1

REPORT INFORMATION
  Report Type: Report from Study
  Country: US (occurrence: US)
  Receive Date: 20230201
  Receipt Date: 20230201
  Transmission Date: 20230417
  Serious: Yes (Hospitalization)
  Sender: FDA-Public Use
  Company Number: US-EXELIXIS-CABO-22058083

PATIENT
  Age: 22 Year
  Sex: Male

DRUGS (8)
  1. CABOMETYX [Suspect]
     Active Substance: CABOZANTINIB S-MALATE
     Indication: Paraganglion neoplasm
     Dosage: 40 MG, QD
     Dates: start: 20221031
  2. METOPROLOL [Concomitant]
     Active Substance: METOPROLOL
  3. DOXAZOSIN [Concomitant]
     Active Substance: DOXAZOSIN MESYLATE
  4. OMEPRAZOLE [Concomitant]
     Active Substance: OMEPRAZOLE
  5. CALCIUM CITRATE\CHOLECALCIFEROL [Concomitant]
     Active Substance: CALCIUM CITRATE\CHOLECALCIFEROL
  6. VITAMIN C [Concomitant]
     Active Substance: ASCORBIC ACID
  7. ASPIRIN [Concomitant]
     Active Substance: ASPIRIN
  8. ZOMETA [Concomitant]
     Active Substance: ZOLEDRONIC ACID

REACTIONS (13)
  - Pulmonary embolism [Unknown]
  - Frequent bowel movements [Recovering/Resolving]
  - Tremor [Unknown]
  - Feeling hot [Unknown]
  - Tongue discomfort [Unknown]
  - Fatigue [Recovering/Resolving]
  - Dry skin [Unknown]
  - Dyspepsia [Recovering/Resolving]
  - Erythema [Unknown]
  - Quality of life decreased [Unknown]
  - Nausea [Unknown]
  - Rash [Recovered/Resolved]
  - Off label use [Unknown]

NARRATIVE: CASE EVENT DATE: 20221031
